FAERS Safety Report 16832186 (Version 1)
Quarter: 2019Q3

REPORT INFORMATION
  Report Type: Spontaneous
  Country: US (occurrence: US)
  Receive Date: 20190920
  Receipt Date: 20190920
  Transmission Date: 20191005
  Serious: Yes (Other)
  Sender: FDA-Public Use
  Company Number: US-PFIZER INC-2019391244

PATIENT
  Age: 33 Year
  Sex: Male

DRUGS (4)
  1. BROMOCRIPTINE [Suspect]
     Active Substance: BROMOCRIPTINE
     Indication: PROLACTIN-PRODUCING PITUITARY TUMOUR
     Dosage: 7.5 MG, DAILY
  2. CABERGOLINE. [Suspect]
     Active Substance: CABERGOLINE
     Dosage: 0.5 MG, THREE TIMES WEEKLY
  3. CABERGOLINE. [Suspect]
     Active Substance: CABERGOLINE
     Indication: PROLACTIN-PRODUCING PITUITARY TUMOUR
     Dosage: 0.5 MG TWICE WEEKLY
  4. CABERGOLINE. [Suspect]
     Active Substance: CABERGOLINE
     Dosage: 1 MG TWICE WEEKLY

REACTIONS (2)
  - Meningitis pneumococcal [Recovered/Resolved]
  - Off label use [Unknown]
